FAERS Safety Report 14629927 (Version 1)
Quarter: 2018Q1

REPORT INFORMATION
  Report Type: Other
  Country: JP (occurrence: JP)
  Receive Date: 20180313
  Receipt Date: 20180313
  Transmission Date: 20180509
  Serious: Yes (Other)
  Sender: FDA-Public Use
  Company Number: JP-EXELTIS USA INC.-2043610

PATIENT
  Age: 61 Year
  Sex: Female

DRUGS (1)
  1. NUVESSA [Suspect]
     Active Substance: METRONIDAZOLE
     Indication: BRAIN ABSCESS

REACTIONS (5)
  - Ataxia [Unknown]
  - Encephalopathy [Unknown]
  - Hypotonia [Unknown]
  - Loss of consciousness [Unknown]
  - Gait disturbance [Unknown]
